FAERS Safety Report 17888633 (Version 8)
Quarter: 2020Q4

REPORT INFORMATION
  Report Type: Spontaneous
  Country: US (occurrence: US)
  Receive Date: 20200612
  Receipt Date: 20201119
  Transmission Date: 20210113
  Serious: Yes (Other)
  Sender: FDA-Public Use
  Company Number: US-GLAXOSMITHKLINE-US2020AMR094755

PATIENT
  Age: 64 Year
  Sex: Female
  Weight: 72 kg

DRUGS (6)
  1. ZEJULA [Suspect]
     Active Substance: NIRAPARIB
     Dosage: 200 MG, QD
     Route: 065
  2. ZEJULA [Suspect]
     Active Substance: NIRAPARIB
     Indication: OVARIAN CANCER
     Dosage: 200 MG DAILY
     Route: 048
     Dates: start: 20200602
  3. ZEJULA [Suspect]
     Active Substance: NIRAPARIB
     Dosage: UNK (100MG ALTERNATING WITH 200MG)
     Dates: start: 20200827
  4. LETROZOLE. [Concomitant]
     Active Substance: LETROZOLE
     Indication: PRODUCT USED FOR UNKNOWN INDICATION
     Dosage: UNK
  5. SENNA [Concomitant]
     Active Substance: SENNA LEAF\SENNOSIDES\SENNOSIDES A AND B
     Indication: CONSTIPATION
     Dosage: UNK
     Route: 065
  6. ZEJULA [Suspect]
     Active Substance: NIRAPARIB
     Dosage: UNK (100MG ALTERNATING WITH 200MG)

REACTIONS (18)
  - Photosensitivity reaction [Unknown]
  - Faeces hard [Unknown]
  - Sunburn [Unknown]
  - Stomatitis [Recovered/Resolved]
  - Bone pain [Unknown]
  - Therapeutic product effect incomplete [Unknown]
  - Hot flush [Unknown]
  - Arthralgia [Unknown]
  - Poor quality sleep [Unknown]
  - Joint stiffness [Not Recovered/Not Resolved]
  - White blood cell count decreased [Not Recovered/Not Resolved]
  - Platelet count decreased [Unknown]
  - Blood pressure increased [Recovered/Resolved]
  - Inappropriate schedule of product administration [Unknown]
  - Recurrent cancer [Unknown]
  - Pruritus [Unknown]
  - Constipation [Unknown]
  - Skin burning sensation [Unknown]

NARRATIVE: CASE EVENT DATE: 20200602
